FAERS Safety Report 8422463 (Version 2)
Quarter: 2012Q4

REPORT INFORMATION
  Report Type: Spontaneous
  Country: US (occurrence: None)
  Receive Date: 20120213
  Receipt Date: 20121025
  Transmission Date: 20130627
  Serious: Yes (Hospitalization, Other)
  Sender: FDA-Public Use
  Company Number: 2012SP006318

PATIENT
  Age: 70 Year
  Sex: Female
  Weight: 68.04 kg

DRUGS (9)
  1. MIRALAX [Suspect]
     Indication: COLONOSCOPY
     Dosage: PO
     Route: 048
     Dates: start: 20110125, end: 20110125
  2. MIRALAX [Suspect]
     Dosage: PO
     Route: 048
     Dates: start: 20110125, end: 20110125
  3. AVAPRO [Concomitant]
  4. PULMICORT [Concomitant]
  5. SINGULAIR [Concomitant]
  6. XOPENEX HFA [Concomitant]
  7. SIMVASTATIN [Concomitant]
  8. ASPIRIN [Concomitant]
  9. TRAVATAN [Concomitant]

REACTIONS (7)
  - Nausea [None]
  - Vomiting [None]
  - Dizziness [None]
  - Blood sodium decreased [None]
  - Blood magnesium decreased [None]
  - Urinary tract infection [None]
  - Dehydration [None]
